FAERS Safety Report 9116698 (Version 3)
Quarter: 2013Q2

REPORT INFORMATION
  Report Type: Spontaneous
  Country: US (occurrence: US)
  Receive Date: 20130225
  Receipt Date: 20130626
  Transmission Date: 20140414
  Serious: Yes (Hospitalization, Other)
  Sender: FDA-Public Use
  Company Number: US-PFIZER INC-2013068218

PATIENT
  Age: 59 Year
  Sex: Female
  Weight: 77.1 kg

DRUGS (10)
  1. LYRICA [Suspect]
     Indication: NEUROPATHY PERIPHERAL
     Dosage: 150 MG, 3X/DAY
     Route: 048
  2. LYRICA [Suspect]
     Indication: DIABETIC NEUROPATHY
     Dosage: 150 MG, 2X/DAY
     Route: 048
  3. LYRICA [Suspect]
     Dosage: 150 MG, 1X/DAY
     Route: 048
  4. LISINOPRIL [Suspect]
     Indication: RENAL DISORDER
     Dosage: 5MG DAILY
  5. SERTRALINE [Suspect]
     Dosage: 50 MG/DAY
  6. ASPIRIN [Concomitant]
     Dosage: 81MG DAILY
  7. SIMVASTATIN [Concomitant]
     Indication: BLOOD CHOLESTEROL INCREASED
     Dosage: 40 MG/DAY
     Dates: start: 201208
  8. METOPROLOL [Concomitant]
     Indication: HYPERTENSION
     Dosage: 50 MG, 2X/DAY
     Dates: start: 201209
  9. CLOPIDOGREL [Concomitant]
     Indication: PROPHYLAXIS
     Dosage: 75 MG/DAY
  10. LANTUS [Concomitant]
     Indication: DIABETES MELLITUS
     Dosage: UNK

REACTIONS (10)
  - Off label use [Unknown]
  - Intentional drug misuse [Unknown]
  - Myocardial infarction [Unknown]
  - Vision blurred [Unknown]
  - Altered visual depth perception [Not Recovered/Not Resolved]
  - Dizziness [Not Recovered/Not Resolved]
  - Balance disorder [Unknown]
  - Gait disturbance [Unknown]
  - Anaemia [Unknown]
  - Blood glucose increased [Unknown]
